FAERS Safety Report 8946894 (Version 1)
Quarter: 2012Q4

REPORT INFORMATION
  Report Type: 
  Country: FR (occurrence: FR)
  Receive Date: 20121205
  Receipt Date: 20121205
  Transmission Date: 20130627
  Serious: Yes (Hospitalization)
  Sender: FDA-Public Use
  Company Number: FR-GLAXOSMITHKLINE-B0848183A

PATIENT
  Age: 68 Year
  Sex: Female

DRUGS (5)
  1. REQUIP [Suspect]
     Indication: PARKINSON^S DISEASE
     Dosage: 12MG Per day
     Route: 048
     Dates: start: 2010, end: 20120925
  2. MODOPAR [Suspect]
     Indication: PARKINSON^S DISEASE
     Dosage: 125MG Twice per day
     Route: 048
  3. FLECAINE [Concomitant]
     Dosage: 150MG Per day
     Route: 048
  4. KARDEGIC [Concomitant]
     Dosage: 160MG Per day
     Route: 048
  5. ZOPICLONE [Concomitant]
     Dosage: 7.5MG per day
     Route: 065

REACTIONS (4)
  - Hallucination, visual [Recovered/Resolved]
  - Abnormal behaviour [Recovered/Resolved]
  - Cognitive disorder [Recovering/Resolving]
  - Disorientation [Recovering/Resolving]
